FAERS Safety Report 10727665 (Version 2)
Quarter: 2015Q4

REPORT INFORMATION
  Report Type: Report from Study
  Country: VE (occurrence: VE)
  Receive Date: 20150121
  Receipt Date: 20151109
  Transmission Date: 20160304
  Serious: Yes (Disabling, Other)
  Sender: FDA-Public Use
  Company Number: PHHY2015VE005747

PATIENT
  Sex: Female

DRUGS (1)
  1. TASIGNA [Suspect]
     Active Substance: NILOTINIB
     Indication: CHRONIC MYELOID LEUKAEMIA
     Dosage: 400 MG, QD
     Route: 048
     Dates: start: 2014

REACTIONS (13)
  - Vaginal disorder [Unknown]
  - Hypertension [Unknown]
  - Haematemesis [Unknown]
  - Asthenia [Unknown]
  - Renal disorder [Unknown]
  - Diabetes mellitus [Unknown]
  - Chronic myeloid leukaemia recurrent [Unknown]
  - Infection [Unknown]
  - Pain [Unknown]
  - Headache [Unknown]
  - Blindness unilateral [Unknown]
  - Splenomegaly [Unknown]
  - Apathy [Unknown]
